FAERS Safety Report 6094057-2 (Version None)
Quarter: 2009Q1

REPORT INFORMATION
  Report Type: 
  Country: None (occurrence: None)
  Receive Date: 20090226
  Receipt Date: 20090225
  Transmission Date: 20090719
  Serious: Yes (Life-Threatening, Hospitalization)
  Sender: FDA-Public Use
  Company Number: GB-JNJFOC-20090205961

PATIENT
  Age: 59 Year
  Sex: Female

DRUGS (5)
  1. RISPERDAL [Suspect]
     Indication: MENTAL DISORDER
     Route: 048
  2. DIAZEPAM [Concomitant]
     Indication: MENTAL DISORDER
     Route: 048
  3. DOTHIEPIN HYDROCHLORIDE [Concomitant]
     Indication: MENTAL DISORDER
     Route: 048
  4. PROPIVERINE [Concomitant]
     Route: 048
  5. SIMVASTATIN [Concomitant]
     Route: 048

REACTIONS (2)
  - ERYTHEMA AB IGNE [None]
  - HYPOTHERMIA [None]
